FAERS Safety Report 7552384-3 (Version None)
Quarter: 2011Q2

REPORT INFORMATION
  Report Type: 
  Country: None (occurrence: None)
  Receive Date: 20110616
  Receipt Date: 20081209
  Transmission Date: 20111010
  Serious: Yes (Death, Hospitalization)
  Sender: FDA-Public Use
  Company Number: PHNR2007AU00797

PATIENT
  Sex: Male

DRUGS (3)
  1. EFFEXOR [Concomitant]
     Route: 065
  2. VALPROATE SODIUM [Concomitant]
     Route: 065
  3. CLOZAPINE [Suspect]
     Indication: SCHIZOPHRENIA
     Dosage: UNK
     Route: 048

REACTIONS (5)
  - DEHYDRATION [None]
  - HEAT STROKE [None]
  - ORGAN FAILURE [None]
  - LOSS OF CONSCIOUSNESS [None]
  - COMA [None]
